FAERS Safety Report 6437783-5 (Version None)
Quarter: 2009Q4

REPORT INFORMATION
  Report Type: 
  Country: None (occurrence: None)
  Receive Date: 20091112
  Receipt Date: 20091105
  Transmission Date: 20100525
  Serious: Yes (Hospitalization)
  Sender: FDA-Public Use
  Company Number: US-NOVOPROD-300408

PATIENT
  Age: 55 Year
  Sex: Male

DRUGS (7)
  1. LEVEMIR [Suspect]
     Indication: TYPE 2 DIABETES MELLITUS
     Dosage: 80 U, BID
     Route: 058
     Dates: start: 20090501
  2. NOVOLOG [Suspect]
     Indication: TYPE 2 DIABETES MELLITUS
     Dosage: SLIDING SCALE; AVERAGE OF 50 UNITS
     Route: 058
     Dates: start: 20090501
  3. GABAPENTIN [Concomitant]
     Indication: NEUROPATHY PERIPHERAL
     Dosage: UNK
  4. VICODIN [Concomitant]
     Indication: DRUG USE FOR UNKNOWN INDICATION
     Dosage: UNK
  5. MORPHINE [Concomitant]
     Indication: DRUG USE FOR UNKNOWN INDICATION
     Dosage: UNK
  6. CORTICOSTEROIDS [Concomitant]
     Indication: CHRONIC OBSTRUCTIVE PULMONARY DISEASE
     Dosage: UNK
  7. LANTUS [Concomitant]
     Indication: TYPE 2 DIABETES MELLITUS
     Dosage: 50 U, TID WITH MEALS
     Route: 058

REACTIONS (2)
  - BLOOD GLUCOSE INCREASED [None]
  - DIABETIC FOOT [None]
